FAERS Safety Report 7912148-5 (Version None)
Quarter: 2011Q4

REPORT INFORMATION
  Report Type: 
  Country: None (occurrence: None)
  Receive Date: 20111114
  Receipt Date: 20111103
  Transmission Date: 20120403
  Serious: Yes (Hospitalization)
  Sender: FDA-Public Use
  Company Number: CH-PFIZER INC-2011277128

PATIENT
  Age: 63 Year
  Sex: Male

DRUGS (11)
  1. SINTROM [Suspect]
     Indication: ATRIAL FLUTTER
  2. INSULATARD NPH HUMAN [Concomitant]
  3. ROSUVASTATIN [Suspect]
     Dosage: 10 MG, 1X/DAY
     Route: 048
  4. ASPIRIN [Suspect]
     Dosage: 100 MG, SINGLE
     Route: 048
  5. ENALAPRIL [Concomitant]
     Dosage: 5 MG, 2X/DAY
  6. TORASEMIDE [Concomitant]
     Dosage: 40 MG, 1X/DAY
  7. SINTROM [Suspect]
     Indication: ATRIAL FIBRILLATION
     Dosage: AS NEEDED
     Route: 048
     Dates: start: 20110815, end: 20110921
  8. CORDARONE [Suspect]
     Dosage: 200 MG, SINGLE
     Route: 048
  9. CIPROFLOXACIN HCL [Suspect]
     Indication: BACTERIAL INFECTION
     Dosage: 500 MG, 2X/DAY
     Route: 048
     Dates: start: 20110810, end: 20110922
  10. NOVOLOG MIX 70/30 [Concomitant]
  11. METOPROLOL SUCCINATE [Concomitant]

REACTIONS (4)
  - DRUG INTERACTION [None]
  - GASTROINTESTINAL HAEMORRHAGE [None]
  - HYPOCHROMIC ANAEMIA [None]
  - INTERNATIONAL NORMALISED RATIO INCREASED [None]
